FAERS Safety Report 5726531-X (Version None)
Quarter: 2008Q2

REPORT INFORMATION
  Report Type: 
  Country: None (occurrence: None)
  Receive Date: 20080502
  Receipt Date: 20080429
  Transmission Date: 20081010
  Serious: Yes (Hospitalization)
  Sender: FDA-Public Use
  Company Number: GB-MERCK-0804GBR00148

PATIENT
  Age: 84 Year
  Sex: Male

DRUGS (2)
  1. ZOCOR [Suspect]
     Route: 065
     Dates: start: 20070927, end: 20080418
  2. ZETIA [Concomitant]
     Route: 065

REACTIONS (1)
  - MYOSITIS [None]
